FAERS Safety Report 9820910 (Version 1)
Quarter: 2014Q1

REPORT INFORMATION
  Report Type: Spontaneous
  Country: GB (occurrence: GB)
  Receive Date: 20140116
  Receipt Date: 20140116
  Transmission Date: 20141002
  Serious: Yes (Other)
  Sender: FDA-Public Use
  Company Number: GB-TEVA-454688ISR

PATIENT
  Age: 74 Year
  Sex: Female
  Weight: 81 kg

DRUGS (9)
  1. INDAPAMIDE [Suspect]
     Dates: start: 20131220
  2. OMEPRAZOLE [Concomitant]
     Dates: start: 20130903, end: 20131001
  3. OMEPRAZOLE [Concomitant]
     Dates: start: 20131105, end: 20131203
  4. OMEPRAZOLE [Concomitant]
     Dates: start: 20131219
  5. QUININE [Concomitant]
     Dates: start: 20130903, end: 20131029
  6. VENTOLIN [Concomitant]
     Dates: start: 20130903, end: 20131001
  7. GABAPENTIN [Concomitant]
     Dates: start: 20131220
  8. PROCHLORPERAZINE [Concomitant]
     Dates: start: 20131220
  9. ZOPICLONE [Concomitant]
     Dates: start: 20131220

REACTIONS (1)
  - Alopecia [Recovering/Resolving]
